FAERS Safety Report 4978501-7 (Version None)
Quarter: 2006Q2

REPORT INFORMATION
  Report Type: 
  Country: None (occurrence: None)
  Receive Date: 20060417
  Receipt Date: 20060406
  Transmission Date: 20061013
  Serious: Yes (Hospitalization)
  Sender: FDA-Public Use
  Company Number: 2006PV011579

PATIENT
  Age: 61 Year
  Sex: Female
  Weight: 113.3993 kg

DRUGS (4)
  1. BYETTA [Suspect]
     Indication: DIABETES MELLITUS NON-INSULIN-DEPENDENT
     Dosage: 10 MCG; BID; SC;  10 MCG; BID; SC;  5 MCG; BID; SC
     Route: 058
     Dates: start: 20060201, end: 20060308
  2. BYETTA [Suspect]
     Indication: DIABETES MELLITUS NON-INSULIN-DEPENDENT
     Dosage: 10 MCG; BID; SC;  10 MCG; BID; SC;  5 MCG; BID; SC
     Route: 058
     Dates: start: 20060309, end: 20060310
  3. BYETTA [Suspect]
     Indication: DIABETES MELLITUS NON-INSULIN-DEPENDENT
     Dosage: 10 MCG; BID; SC;  10 MCG; BID; SC;  5 MCG; BID; SC
     Route: 058
     Dates: start: 20060406
  4. METFORMIN [Concomitant]

REACTIONS (1)
  - APPENDICITIS [None]
